FAERS Safety Report 9396050 (Version 2)
Quarter: 2013Q3

REPORT INFORMATION
  Report Type: Spontaneous
  Country: US (occurrence: US)
  Receive Date: 20130711
  Receipt Date: 20130813
  Transmission Date: 20140515
  Serious: No
  Sender: FDA-Public Use
  Company Number: US-009507513-1307USA005318

PATIENT
  Age: 68 Year
  Sex: Female
  Weight: 70.3 kg

DRUGS (4)
  1. CLARITIN-D-24 [Suspect]
     Indication: NASOPHARYNGITIS
     Dosage: 10 MG, ONCE
     Route: 048
     Dates: start: 20130627, end: 20130627
  2. CLARITIN-D-24 [Suspect]
     Indication: SNEEZING
  3. CLARITIN-D-24 [Suspect]
     Indication: COUGH
  4. CLARITIN-D-24 [Suspect]
     Indication: MEDICAL OBSERVATION

REACTIONS (3)
  - Head discomfort [Recovered/Resolved]
  - Unevaluable event [Recovered/Resolved]
  - Headache [Recovered/Resolved]
